FAERS Safety Report 9887435 (Version 1)
Quarter: 2014Q1

REPORT INFORMATION
  Report Type: Spontaneous
  Country: US (occurrence: None)
  Receive Date: 20140207
  Receipt Date: 20140207
  Transmission Date: 20141002
  Serious: No
  Sender: FDA-Public Use
  Company Number: None

PATIENT
  Age: 50 Year
  Sex: Female

DRUGS (1)
  1. CIMZIA 200 MG PFS 2/PKG [Suspect]
     Dosage: INJECT 400MG UNDER THE SKIN EVERY 4 WEEKS
     Dates: start: 20131230

REACTIONS (2)
  - Chest pain [None]
  - Chest X-ray abnormal [None]
